FAERS Safety Report 4797065-4 (Version None)
Quarter: 2005Q4

REPORT INFORMATION
  Report Type: 
  Country: None (occurrence: None)
  Receive Date: 20051013
  Receipt Date: 20051003
  Transmission Date: 20060501
  Serious: Yes (Hospitalization)
  Sender: FDA-Public Use
  Company Number: NO-MERCK-0510NOR00007

PATIENT
  Age: 60 Year
  Sex: Male

DRUGS (3)
  1. VIOXX [Suspect]
     Indication: ANKYLOSING SPONDYLITIS
     Route: 048
     Dates: start: 20010928, end: 20040901
  2. ASPIRIN AND MAGNESIUM OXIDE [Concomitant]
     Route: 048
  3. ENALAPRIL MALEATE [Concomitant]
     Route: 065

REACTIONS (4)
  - ATRIAL FIBRILLATION [None]
  - CORONARY ARTERY DISEASE [None]
  - MYOCARDIAL INFARCTION [None]
  - RASH [None]
